FAERS Safety Report 24055788 (Version 1)
Quarter: 2024Q3

REPORT INFORMATION
  Report Type: Report from Study
  Country: US (occurrence: None)
  Receive Date: 20240705
  Receipt Date: 20240705
  Transmission Date: 20241017
  Serious: Yes (Other)
  Sender: ASTRAZENECA
  Company Number: 2024A150411

PATIENT
  Sex: Female

DRUGS (1)
  1. FASENRA [Suspect]
     Active Substance: BENRALIZUMAB
     Dosage: AT WEEKS 0, 4, AND 8 FOLLOWED BY EVERY 8 WEEKS
     Route: 058

REACTIONS (3)
  - Thrombosis [Unknown]
  - Arthropathy [Unknown]
  - Pain in extremity [Unknown]
